FAERS Safety Report 7379759-X (Version None)
Quarter: 2011Q1

REPORT INFORMATION
  Report Type: 
  Country: None (occurrence: None)
  Receive Date: 20110318
  Receipt Date: 20110303
  Transmission Date: 20110831
  Serious: Yes (Other)
  Sender: FDA-Public Use
  Company Number: 2009S1005571

PATIENT
  Age: 71 Year
  Sex: Female
  Weight: 74.3899 kg

DRUGS (6)
  1. CRESTOR [Concomitant]
  2. CHLORTHALIDONE [Concomitant]
  3. ALEVE [Concomitant]
  4. BENAZEPRIL W/ HYDROCHLOROTHIAZIDE [Concomitant]
  5. PHOSPHOSODA FLAVOR NOT SPECIFIED [Suspect]
     Indication: COLONOSCOPY
     Dosage: PO
     Route: 048
     Dates: start: 20060202, end: 20060202
  6. ASPIRIN [Concomitant]

REACTIONS (6)
  - ACUTE PHOSPHATE NEPHROPATHY [None]
  - NEPHROGENIC ANAEMIA [None]
  - RENAL FAILURE ACUTE [None]
  - RENAL FAILURE CHRONIC [None]
  - DECREASED APPETITE [None]
  - DYSGEUSIA [None]
